FAERS Safety Report 10930427 (Version 2)
Quarter: 2015Q2

REPORT INFORMATION
  Report Type: Spontaneous
  Country: NZ (occurrence: NZ)
  Receive Date: 20150319
  Receipt Date: 20150416
  Transmission Date: 20150821
  Serious: Yes (Hospitalization, Other)
  Sender: FDA-Public Use
  Company Number: NZ-GLAXOSMITHKLINE-NZ2015GSK033292

PATIENT
  Age: 39 Year
  Sex: Male

DRUGS (2)
  1. LAMICTAL [Suspect]
     Active Substance: LAMOTRIGINE
     Indication: SEIZURE
     Dosage: 50 MG, BID
     Dates: start: 201408, end: 20150302
  2. PREDNISONE. [Concomitant]
     Active Substance: PREDNISONE
     Indication: DENTAL OPERATION
     Dosage: UNK
     Dates: start: 20150223, end: 20150227

REACTIONS (7)
  - Sleep apnoea syndrome [Unknown]
  - Psychotic behaviour [Recovered/Resolved]
  - Seizure [Unknown]
  - Fear [Recovered/Resolved]
  - Delusion [Recovered/Resolved]
  - Suicidal ideation [Recovered/Resolved]
  - Judgement impaired [Recovered/Resolved]

NARRATIVE: CASE EVENT DATE: 201408
